FAERS Safety Report 11452529 (Version 1)
Quarter: 2015Q3

REPORT INFORMATION
  Report Type: Spontaneous
  Country: BR (occurrence: BR)
  Receive Date: 20150903
  Receipt Date: 20150903
  Transmission Date: 20151125
  Serious: Yes (Death, Hospitalization)
  Sender: FDA-Public Use
  Company Number: BR-PFIZER INC-2015147632

PATIENT
  Age: 33 Year
  Sex: Male

DRUGS (1)
  1. SUTENT [Suspect]
     Active Substance: SUNITINIB MALATE
     Indication: METASTATIC RENAL CELL CARCINOMA
     Dosage: UNK
     Dates: end: 2015

REACTIONS (4)
  - Metastatic renal cell carcinoma [Fatal]
  - Disease progression [Fatal]
  - Sepsis [Fatal]
  - Lung disorder [Fatal]

NARRATIVE: CASE EVENT DATE: 201503
